FAERS Safety Report 23367845 (Version 1)
Quarter: 2024Q1

REPORT INFORMATION
  Report Type: Spontaneous
  Country: US (occurrence: US)
  Receive Date: 20240104
  Receipt Date: 20240104
  Transmission Date: 20240410
  Serious: Yes (Hospitalization, Other)
  Sender: FDA-Public Use
  Company Number: US-AUROBINDO-AUR-APL-2023-081689

PATIENT
  Age: 40 Year
  Sex: Female

DRUGS (5)
  1. ALBUTEROL [Suspect]
     Active Substance: ALBUTEROL
     Indication: Dyspnoea
     Dosage: UNK
     Route: 065
  2. AZITHROMYCIN [Suspect]
     Active Substance: AZITHROMYCIN
     Indication: Dyspnoea
     Dosage: UNK
     Route: 065
  3. AZITHROMYCIN [Suspect]
     Active Substance: AZITHROMYCIN
     Indication: Cough
  4. GUAIFENESIN [Suspect]
     Active Substance: GUAIFENESIN
     Indication: Dyspnoea
     Dosage: UNK
     Route: 065
  5. GUAIFENESIN [Suspect]
     Active Substance: GUAIFENESIN
     Indication: Cough

REACTIONS (1)
  - Drug ineffective [Unknown]
